FAERS Safety Report 17452170 (Version 1)
Quarter: 2020Q1

REPORT INFORMATION
  Report Type: Spontaneous
  Country: US (occurrence: US)
  Receive Date: 20200224
  Receipt Date: 20200224
  Transmission Date: 20200409
  Serious: Yes (Other)
  Sender: FDA-Public Use
  Company Number: US-AKORN PHARMACEUTICALS-2020AKN00149

PATIENT
  Sex: Male
  Weight: 79.37 kg

DRUGS (2)
  1. MYORISAN [Suspect]
     Active Substance: ISOTRETINOIN
     Indication: ACNE
     Dosage: 60 MG
     Dates: start: 20191009, end: 201912
  2. VITAMIN D [Concomitant]
     Active Substance: VITAMIN D NOS

REACTIONS (2)
  - Mood altered [Recovered/Resolved]
  - Seasonal affective disorder [Recovered/Resolved]

NARRATIVE: CASE EVENT DATE: 2019
